FAERS Safety Report 6109337-1 (Version None)
Quarter: 2009Q1

REPORT INFORMATION
  Report Type: 
  Country: None (occurrence: None)
  Receive Date: 20090309
  Receipt Date: 20090309
  Transmission Date: 20090719
  Serious: No
  Sender: FDA-Public Use
  Company Number: None

PATIENT
  Sex: Male
  Weight: 90.91 kg

DRUGS (13)
  1. GLYBURIDE [Suspect]
     Dosage: 5 MG TABLET 7.5 MG QD ORAL
     Route: 048
     Dates: start: 20081107, end: 20090306
  2. ASPIRIN [Concomitant]
  3. BETAMETHASONE VALERATE [Concomitant]
  4. METOPROLOL SUCCINATE EXTENDED RELEASE [Concomitant]
  5. PRILOSEC [Concomitant]
  6. REQUIP [Concomitant]
  7. REQUIP XL (ROPINIROLE EXTENDED RELEASE) [Concomitant]
  8. SIMVASTATIN [Concomitant]
  9. SINEMET (CARBIDOPA/LEVODOPA CONTROLLED RELEASE) [Concomitant]
  10. SINEMET CONTROLLED RELEASE [Concomitant]
  11. SITAGLIPTIN [Concomitant]
  12. SUCRALFATE [Concomitant]
  13. LEVOTHYROXINE SODIUM [Concomitant]

REACTIONS (1)
  - RASH [None]
